FAERS Safety Report 8143501-5 (Version None)
Quarter: 2012Q1

REPORT INFORMATION
  Report Type: 
  Country: None (occurrence: None)
  Receive Date: 20120217
  Receipt Date: 20120207
  Transmission Date: 20120608
  Serious: Yes (Other)
  Sender: FDA-Public Use
  Company Number: JP-BRISTOL-MYERS SQUIBB COMPANY-16355505

PATIENT
  Age: 61 Year
  Sex: Female

DRUGS (3)
  1. TOPOTECAN [Suspect]
     Indication: HEPATIC CANCER METASTATIC
     Dosage: LAST DOSE ON 07JAN12
     Route: 042
     Dates: end: 20120107
  2. WARFARIN [Concomitant]
  3. ERBITUX [Suspect]
     Indication: HEPATIC CANCER METASTATIC
     Route: 041

REACTIONS (1)
  - BONE MARROW FAILURE [None]
